FAERS Safety Report 11272004 (Version 1)
Quarter: 2015Q3

REPORT INFORMATION
  Report Type: Spontaneous
  Country: FR (occurrence: None)
  Receive Date: 20150713
  Receipt Date: 20150713
  Transmission Date: 20151125
  Serious: Yes (Hospitalization, Other)
  Sender: FDA-Public Use
  Company Number: 2015FE00518

PATIENT
  Age: 57 Year
  Sex: Female

DRUGS (7)
  1. HYDROCORTISONE. [Concomitant]
     Active Substance: HYDROCORTISONE
  2. LEVOTHYROD (LEVOTHROXINE SODIUM) [Concomitant]
  3. LEVETIRACETAM (LEVETIRACETAM) [Concomitant]
     Active Substance: LEVETIRACETAM
  4. PANTOPRAZOLE [Concomitant]
     Active Substance: PANTOPRAZOLE SODIUM
  5. MINIRIN [Suspect]
     Active Substance: DESMOPRESSIN ACETATE
     Indication: DIABETES INSIPIDUS
  6. MINIRIN [Suspect]
     Active Substance: DESMOPRESSIN ACETATE
     Indication: DIABETES INSIPIDUS
     Dosage: ONE SPRAY IN THE MORNING AND THE EVENING
     Route: 045
     Dates: start: 20150211, end: 20150216
  7. CABERGOLINE. [Concomitant]
     Active Substance: CABERGOLINE

REACTIONS (4)
  - Hypernatraemia [None]
  - Hyperthermia [None]
  - Somnolence [None]
  - Prescribed overdose [None]

NARRATIVE: CASE EVENT DATE: 20150211
